FAERS Safety Report 7936110-1 (Version None)
Quarter: 2011Q4

REPORT INFORMATION
  Report Type: 
  Country: None (occurrence: None)
  Receive Date: 20111123
  Receipt Date: 20111114
  Transmission Date: 20120403
  Serious: No
  Sender: FDA-Public Use
  Company Number: US-JNJFOC-20111105856

PATIENT
  Age: 51 Year
  Sex: Male

DRUGS (2)
  1. INVEGA SUSTENNA [Suspect]
     Indication: PRODUCT USED FOR UNKNOWN INDICATION
     Route: 030
     Dates: start: 20110101
  2. INVEGA SUSTENNA [Suspect]
     Route: 030
     Dates: start: 20110101

REACTIONS (1)
  - EXTRAPYRAMIDAL DISORDER [None]
